FAERS Safety Report 4325068-2 (Version None)
Quarter: 2004Q1

REPORT INFORMATION
  Report Type: 
  Country: None (occurrence: None)
  Receive Date: 20040323
  Receipt Date: 20040308
  Transmission Date: 20041129
  Serious: Yes (Death, Hospitalization, Other)
  Sender: FDA-Public Use
  Company Number: A-US2004-04732

PATIENT
  Age: 73 Year
  Sex: Female
  Weight: 61.2 kg

DRUGS (16)
  1. TRACLEER [Suspect]
     Indication: PULMONARY HYPERTENSION
     Dosage: 62.5 MG, BID, ORAL
     Route: 048
     Dates: start: 20020901
  2. PROTONIX [Concomitant]
  3. TIAZAC [Concomitant]
  4. LANOXIN [Concomitant]
  5. COLACE (DOCUSATE SODIUM) [Concomitant]
  6. LORAZEPAM [Concomitant]
  7. TRAZODONE HCL [Concomitant]
  8. CELEXA [Concomitant]
  9. COUMADIN [Concomitant]
  10. MAGNESIUM OXIDE (MAGNESIUM OXIDE) [Concomitant]
  11. DEMADEX [Concomitant]
  12. POTASSIUM (POTASSIUM) [Concomitant]
  13. ASPIRIN [Concomitant]
  14. SINEMET [Concomitant]
  15. CHROMAGEN (ASCORBIC ACID, CYANOCOBALAMIN, FERROUS FUMARATE, STOMACH DE [Concomitant]
  16. VERAPAMIL [Concomitant]

REACTIONS (11)
  - ANAEMIA [None]
  - ASPARTATE AMINOTRANSFERASE INCREASED [None]
  - BLOOD ALKALINE PHOSPHATASE INCREASED [None]
  - BLOOD BILIRUBIN INCREASED [None]
  - BLOOD UREA INCREASED [None]
  - CARDIAC VALVE DISEASE [None]
  - DRUG TOXICITY [None]
  - LIVER FUNCTION TEST ABNORMAL [None]
  - OEDEMA [None]
  - PULMONARY HYPERTENSION [None]
  - WEIGHT INCREASED [None]
